FAERS Safety Report 11216831 (Version 1)
Quarter: 2015Q2

REPORT INFORMATION
  Report Type: Spontaneous
  Country: CH (occurrence: AT)
  Receive Date: 20150624
  Receipt Date: 20150624
  Transmission Date: 20150821
  Serious: Yes (Other)
  Sender: FDA-Public Use
  Company Number: CH-LPDUSPRD-20150473

PATIENT
  Age: 27 Year
  Sex: Female
  Weight: 55 kg

DRUGS (2)
  1. THYREX [Concomitant]
     Active Substance: LEVOTHYROXINE SODIUM
     Dosage: DOSE NOT PROVIDED
     Route: 048
  2. VENOFER [Suspect]
     Active Substance: IRON SUCROSE
     Dosage: 200 MG/250 ML NACL
     Route: 041
     Dates: start: 20150521, end: 20150609

REACTIONS (7)
  - Hyperventilation [Unknown]
  - Circulatory collapse [Unknown]
  - Dyspnoea [Unknown]
  - Urticaria [Unknown]
  - Wrong technique in drug usage process [Unknown]
  - Syncope [Unknown]
  - Panic attack [Unknown]

NARRATIVE: CASE EVENT DATE: 20150609
